FAERS Safety Report 20526700 (Version 1)
Quarter: 2022Q1

REPORT INFORMATION
  Report Type: Report from Study
  Country: BR (occurrence: BR)
  Receive Date: 20220228
  Receipt Date: 20220228
  Transmission Date: 20220423
  Serious: Yes (Other)
  Sender: FDA-Public Use
  Company Number: BR-NOVARTISPH-NVSC2022BR043140

PATIENT
  Sex: Female

DRUGS (1)
  1. VOTRIENT [Suspect]
     Active Substance: PAZOPANIB HYDROCHLORIDE
     Indication: Renal cancer
     Dosage: UNK
     Route: 065
     Dates: start: 20200921

REACTIONS (3)
  - Hepatic neoplasm [Not Recovered/Not Resolved]
  - Second primary malignancy [Unknown]
  - Lung neoplasm [Recovering/Resolving]
